FAERS Safety Report 8282257-2 (Version None)
Quarter: 2012Q2

REPORT INFORMATION
  Report Type: 
  Country: None (occurrence: None)
  Receive Date: 20120413
  Receipt Date: 20120406
  Transmission Date: 20120825
  Serious: Yes (Hospitalization)
  Sender: FDA-Public Use
  Company Number: US-B.I. PHARMACEUTICALS,INC./RIDGEFIELD-2012-BP-06491BP

PATIENT
  Age: 70 Year
  Sex: Female

DRUGS (6)
  1. GLIPIZIDE [Concomitant]
     Indication: DIABETES MELLITUS
     Route: 048
  2. ASPIRIN [Concomitant]
     Indication: CARDIOVASCULAR EVENT PROPHYLAXIS
     Dosage: 81 MG
     Route: 048
  3. OXYGEN [Concomitant]
     Indication: LUNG NEOPLASM MALIGNANT
     Route: 055
  4. ALBUTEROL [Concomitant]
     Indication: LUNG NEOPLASM MALIGNANT
     Route: 055
  5. METFORMIN HCL [Concomitant]
     Indication: DIABETES MELLITUS
     Route: 048
  6. PRADAXA [Suspect]
     Indication: ATRIAL FIBRILLATION
     Dosage: 300 MG
     Route: 048
     Dates: start: 20111201, end: 20120404

REACTIONS (4)
  - CHEST PAIN [None]
  - GROIN PAIN [None]
  - RECTAL HAEMORRHAGE [None]
  - ABDOMINAL PAIN [None]
